FAERS Safety Report 6245457-9 (Version None)
Quarter: 2009Q2

REPORT INFORMATION
  Report Type: 
  Country: None (occurrence: None)
  Receive Date: 20090625
  Receipt Date: 20090619
  Transmission Date: 20091009
  Serious: Yes (Death, Hospitalization)
  Sender: FDA-Public Use
  Company Number: PHHO2009AU07756

PATIENT
  Sex: Female

DRUGS (14)
  1. CYCLOSPORINE [Suspect]
     Indication: RENAL TRANSPLANT
     Dosage: 350 MG / DAY
     Route: 048
     Dates: start: 20040810, end: 20040819
  2. MYCOPHENOLATE MOFETIL [Suspect]
     Indication: RENAL TRANSPLANT
     Dosage: 1000 MG / DAY
     Route: 048
     Dates: start: 20040809, end: 20040820
  3. DACLIZUMAB [Suspect]
     Indication: RENAL TRANSPLANT
     Dosage: 2 MG/KG
     Route: 042
  4. METHYLPREDNISOLONE [Suspect]
     Indication: RENAL TRANSPLANT
     Dosage: 250 MG / DAY
     Route: 042
     Dates: start: 20040810, end: 20040824
  5. PREDNISONE [Suspect]
     Indication: RENAL TRANSPLANT
     Dosage: 30 MG / DAY
     Route: 048
     Dates: start: 20040813, end: 20040901
  6. TIMENTIN [Suspect]
     Indication: PROPHYLAXIS
     Dosage: 2 G, BID
     Route: 042
     Dates: start: 20040810, end: 20040812
  7. SERETIDE [Concomitant]
  8. CALCITRIOL [Concomitant]
  9. BACTRIM [Concomitant]
  10. OMEPRAZOLE [Concomitant]
  11. GLICLAZIDE [Concomitant]
  12. GLIMEPIRIDE [Concomitant]
  13. NYSTATIN [Concomitant]
  14. VALACYCLOVIR HCL [Concomitant]

REACTIONS (7)
  - CARDIAC ARREST [None]
  - ENDOTRACHEAL INTUBATION [None]
  - HYPOXIC ENCEPHALOPATHY [None]
  - PNEUMOPERITONEUM [None]
  - RENAL TUBULAR NECROSIS [None]
  - RESUSCITATION [None]
  - URINE OUTPUT DECREASED [None]
